FAERS Safety Report 15639902 (Version 1)
Quarter: 2018Q4

REPORT INFORMATION
  Report Type: Spontaneous
  Country: FR (occurrence: FR)
  Receive Date: 20181120
  Receipt Date: 20181120
  Transmission Date: 20190205
  Serious: Yes (Congenital Anomaly)
  Sender: FDA-Public Use
  Company Number: FR-LUNDBECK-DKLU2057257

PATIENT
  Age: 6 Year
  Sex: Male

DRUGS (2)
  1. CLOBAZAM. [Suspect]
     Active Substance: CLOBAZAM
     Indication: EPILEPSY
     Route: 064
  2. VALPROATE SODIUM/VALPROIC ACID [Suspect]
     Active Substance: VALPROIC ACID
     Indication: EPILEPSY
     Route: 064

REACTIONS (7)
  - Ear, nose and throat examination abnormal [Not Recovered/Not Resolved]
  - Psychomotor retardation [Not Recovered/Not Resolved]
  - Foot deformity [Not Recovered/Not Resolved]
  - Developmental delay [Not Recovered/Not Resolved]
  - Speech disorder [Not Recovered/Not Resolved]
  - Foetal exposure during pregnancy [Recovered/Resolved]
  - Vision blurred [Not Recovered/Not Resolved]
